FAERS Safety Report 16772585 (Version 1)
Quarter: 2019Q3

REPORT INFORMATION
  Report Type: Spontaneous
  Country: US (occurrence: US)
  Receive Date: 20190715
  Receipt Date: 20190715
  Transmission Date: 20191005
  Serious: Yes (Hospitalization, Disabling)
  Sender: FDA-Public Use
  Company Number: None

PATIENT
  Age: 67 Year
  Sex: Female

DRUGS (1)
  1. BEVACIZUMAB 1.25MG/0.5 ML [Suspect]
     Active Substance: BEVACIZUMAB
     Indication: MACULAR OEDEMA
     Route: 031
     Dates: start: 20190523

REACTIONS (6)
  - Macular oedema [None]
  - Endophthalmitis [None]
  - Wrong technique in device usage process [None]
  - Anaphylactic reaction [None]
  - Eye injury [None]
  - Infection [None]

NARRATIVE: CASE EVENT DATE: 20190523
